FAERS Safety Report 5239975-X (Version None)
Quarter: 2007Q1

REPORT INFORMATION
  Report Type: 
  Country: None (occurrence: None)
  Receive Date: 20070216
  Receipt Date: 20070206
  Transmission Date: 20070707
  Serious: Yes (Life-Threatening)
  Sender: FDA-Public Use
  Company Number: IL-PFIZER INC-2006148110

PATIENT
  Age: 1 Year
  Sex: Female
  Weight: 7.5 kg

DRUGS (5)
  1. VFEND [Suspect]
     Indication: PROPHYLAXIS
     Route: 048
     Dates: start: 20061115, end: 20061119
  2. VFEND [Suspect]
     Route: 048
     Dates: start: 20061120, end: 20061125
  3. CYCLOSPORINE [Concomitant]
  4. BUSULFEX [Concomitant]
  5. CYTOXAN [Concomitant]

REACTIONS (1)
  - VENOOCCLUSIVE LIVER DISEASE [None]
